FAERS Safety Report 9857357 (Version 1)
Quarter: 2014Q1

REPORT INFORMATION
  Report Type: Spontaneous
  Country: BE (occurrence: BE)
  Receive Date: 20140130
  Receipt Date: 20140130
  Transmission Date: 20141002
  Serious: Yes (Hospitalization, Other)
  Sender: FDA-Public Use
  Company Number: BE-JNJFOC-20140113827

PATIENT
  Age: 7 Month
  Sex: Male
  Weight: 8.4 kg

DRUGS (5)
  1. MOTILIUM [Suspect]
     Indication: VOMITING
     Route: 065
  2. PERDOLAN [Suspect]
     Route: 065
  3. PERDOLAN [Suspect]
     Indication: PYREXIA
     Route: 065
     Dates: start: 20131025
  4. TASECTAN [Suspect]
     Indication: DIARRHOEA
     Route: 048
     Dates: start: 20131025
  5. BACILAC [Suspect]
     Indication: DIARRHOEA
     Route: 048
     Dates: start: 20131025

REACTIONS (1)
  - Intussusception [Recovering/Resolving]
